FAERS Safety Report 21148190 (Version 1)
Quarter: 2022Q3

REPORT INFORMATION
  Report Type: Spontaneous
  Country: AT (occurrence: AT)
  Receive Date: 20220729
  Receipt Date: 20220729
  Transmission Date: 20221027
  Serious: Yes (Hospitalization, Other)
  Sender: FDA-Public Use
  Company Number: None

PATIENT
  Age: 77 Year
  Sex: Female
  Weight: 92 kg

DRUGS (1)
  1. ELIQUIS [Suspect]
     Active Substance: APIXABAN
     Indication: Cerebrovascular accident prophylaxis
     Route: 065

REACTIONS (4)
  - Cerebrovascular accident [Recovered/Resolved]
  - Asthenia [Recovering/Resolving]
  - Speech disorder [Not Recovered/Not Resolved]
  - Mobility decreased [Recovering/Resolving]

NARRATIVE: CASE EVENT DATE: 20220414
